FAERS Safety Report 7513780-3 (Version None)
Quarter: 2011Q2

REPORT INFORMATION
  Report Type: 
  Country: None (occurrence: None)
  Receive Date: 20110531
  Receipt Date: 20110518
  Transmission Date: 20111010
  Serious: Yes (Death, Hospitalization)
  Sender: FDA-Public Use
  Company Number: DE-UCBSA-027036

PATIENT
  Age: 75 Year
  Sex: Female
  Weight: 58 kg

DRUGS (12)
  1. CIMZIA [Suspect]
     Route: 058
     Dates: start: 20110214, end: 20110303
  2. INNOLET [Concomitant]
     Indication: TYPE 2 DIABETES MELLITUS
     Route: 058
     Dates: start: 19980201, end: 20110326
  3. METOCLOPRAMIDE DROPS [Concomitant]
     Indication: NAUSEA
     Dosage: 4.21/4/3.57  3X20/DAY
     Dates: start: 20110201, end: 20110326
  4. HUMALOG READY TO USE PEN [Concomitant]
     Indication: TYPE 2 DIABETES MELLITUS
     Dosage: 32/10/16 IE
     Route: 058
     Dates: start: 19960201, end: 20110326
  5. CIMZIA [Suspect]
     Route: 058
     Dates: start: 20110131
  6. SPIRIVA [Concomitant]
     Indication: CHRONIC OBSTRUCTIVE PULMONARY DISEASE
     Route: 048
     Dates: end: 20110326
  7. SYMBICORT [Concomitant]
     Indication: CHRONIC OBSTRUCTIVE PULMONARY DISEASE
     Dosage: 260/6/4.91 MICROGRAM
     Route: 045
  8. HUMAN INSULIN [Concomitant]
     Indication: TYPE 2 DIABETES MELLITUS
     Dosage: 10 IE ONCE A DAY
     Route: 058
  9. CIMZIA [Suspect]
     Indication: RHEUMATOID ARTHRITIS
     Dosage: NUMBER OF DOSES: 19
     Route: 058
     Dates: start: 20100212, end: 20110112
  10. CIMZIA [Suspect]
     Route: 058
     Dates: start: 20110301, end: 20110303
  11. SYMBICORT [Concomitant]
     Indication: ASTHMA
     Dosage: 260/6/4.91 MICROGRAM
     Route: 045
  12. DOSS [Concomitant]
     Indication: OSTEOPOROSIS

REACTIONS (4)
  - BACTERIAL SEPSIS [None]
  - MYOCARDIAL INFARCTION [None]
  - PNEUMONIA [None]
  - CARDIOMEGALY [None]
